FAERS Safety Report 24985681 (Version 1)
Quarter: 2025Q1

REPORT INFORMATION
  Report Type: Spontaneous
  Country: CN (occurrence: CN)
  Receive Date: 20250219
  Receipt Date: 20250219
  Transmission Date: 20250408
  Serious: Yes (Hospitalization, Other)
  Sender: ALEXION PHARMACEUTICALS
  Company Number: CN-AstraZeneca-2016SE10353

PATIENT

DRUGS (7)
  1. NEXIUM [Suspect]
     Active Substance: ESOMEPRAZOLE MAGNESIUM
     Indication: Duodenal ulcer haemorrhage
     Dosage: 1 DOSAGE FORM, QD
  2. NEXIUM [Suspect]
     Active Substance: ESOMEPRAZOLE MAGNESIUM
     Dosage: 1 DOSAGE FORM, QD
  3. AMOXICILLIN [Concomitant]
     Active Substance: AMOXICILLIN
  4. CLARITHROMYCIN [Concomitant]
     Active Substance: CLARITHROMYCIN
  5. FOLIC ACID [Concomitant]
     Active Substance: FOLIC ACID
  6. METHYLCOBALAMIN [Concomitant]
     Active Substance: METHYLCOBALAMIN
  7. FERRIC POLYSACCHARIDE COMPLEX [Concomitant]
     Active Substance: FERRIC POLYSACCHARIDE COMPLEX
     Indication: Nutritional supplementation

REACTIONS (4)
  - Tinnitus [Recovered/Resolved]
  - Insomnia [Recovered/Resolved]
  - Anaemia [Unknown]
  - Gastritis erosive [Unknown]
